FAERS Safety Report 7610670-2 (Version None)
Quarter: 2011Q3

REPORT INFORMATION
  Report Type: 
  Country: None (occurrence: None)
  Receive Date: 20110715
  Receipt Date: 20110701
  Transmission Date: 20111222
  Serious: Yes (Other)
  Sender: FDA-Public Use
  Company Number: US-SHIONOGI, INC-2011000117

PATIENT

DRUGS (1)
  1. EPINEPHRINE [Suspect]

REACTIONS (2)
  - PRODUCT QUALITY ISSUE [None]
  - DEVICE FAILURE [None]
